FAERS Safety Report 22400239 (Version 1)
Quarter: 2023Q2

REPORT INFORMATION
  Report Type: Spontaneous
  Country: US (occurrence: None)
  Receive Date: 20230601
  Receipt Date: 20230601
  Transmission Date: 20230722
  Serious: Yes (Hospitalization)
  Sender: FDA-Public Use
  Company Number: None

PATIENT
  Age: 33 Year
  Sex: Female
  Weight: 50.85 kg

DRUGS (8)
  1. SEMAGLUTIDE [Suspect]
     Active Substance: SEMAGLUTIDE
     Indication: Weight decreased
     Route: 058
     Dates: start: 20230408, end: 20230520
  2. VENLAFAXINE [Concomitant]
     Active Substance: VENLAFAXINE HYDROCHLORIDE
  3. TOPAMAX [Concomitant]
     Active Substance: TOPIRAMATE
  4. SUMATRIPTAN [Concomitant]
     Active Substance: SUMATRIPTAN
  5. DIAZEPAM [Concomitant]
     Active Substance: DIAZEPAM
  6. CYCLOBENZAPRINE [Concomitant]
     Active Substance: CYCLOBENZAPRINE
  7. MAGNESIUM [Concomitant]
     Active Substance: MAGNESIUM
  8. COENZYME Q10 [Concomitant]
     Active Substance: DIETARY SUPPLEMENT\UBIDECARENONE

REACTIONS (17)
  - Adverse drug reaction [None]
  - Nausea [None]
  - Dizziness [None]
  - Flushing [None]
  - Syncope [None]
  - Fatigue [None]
  - Somnolence [None]
  - Illness [None]
  - Tachycardia [None]
  - Dyspnoea [None]
  - Night sweats [None]
  - Malaise [None]
  - Hypotension [None]
  - Chest pain [None]
  - Cold sweat [None]
  - Pallor [None]
  - Postural orthostatic tachycardia syndrome [None]

NARRATIVE: CASE EVENT DATE: 20230526
